FAERS Safety Report 10453234 (Version 4)
Quarter: 2014Q4

REPORT INFORMATION
  Report Type: Spontaneous
  Country: JP (occurrence: JP)
  Receive Date: 20140915
  Receipt Date: 20141202
  Transmission Date: 20150528
  Serious: Yes (Other)
  Sender: FDA-Public Use
  Company Number: JP-BRISTOL-MYERS SQUIBB COMPANY-21369244

PATIENT
  Age: 66 Year
  Sex: Male
  Weight: 70 kg

DRUGS (4)
  1. FORXIGA [Suspect]
     Active Substance: DAPAGLIFLOZIN
     Indication: DIABETES MELLITUS
     Dosage: STRENGTH: 5MG TABS
     Route: 048
     Dates: start: 20140714
  2. DAONIL [Concomitant]
     Active Substance: GLYBURIDE
     Route: 048
     Dates: start: 20120616
  3. JANUVIA [Concomitant]
     Active Substance: SITAGLIPTIN PHOSPHATE
     Indication: DIABETES MELLITUS
  4. NIFEDIPINE. [Concomitant]
     Active Substance: NIFEDIPINE
     Indication: HYPERTENSION

REACTIONS (1)
  - Cerebral infarction [Recovering/Resolving]

NARRATIVE: CASE EVENT DATE: 20140821
